FAERS Safety Report 5570677-6 (Version None)
Quarter: 2007Q4

REPORT INFORMATION
  Report Type: 
  Country: None (occurrence: None)
  Receive Date: 20071221
  Receipt Date: 20071211
  Transmission Date: 20080405
  Serious: Yes (Other)
  Sender: FDA-Public Use
  Company Number: DE-JNJFOC-20071203342

PATIENT
  Age: 40 Year
  Sex: Female

DRUGS (6)
  1. DOLORMIN EXTRA [Suspect]
  2. DOLORMIN EXTRA [Suspect]
  3. DOLORMIN EXTRA [Suspect]
  4. DOLORMIN EXTRA [Suspect]
     Indication: HEADACHE
  5. ASCORBIC ACID [Interacting]
  6. ASCORBIC ACID [Interacting]
     Indication: DRUG USE FOR UNKNOWN INDICATION

REACTIONS (2)
  - ANGIOEDEMA [None]
  - DRUG INTERACTION [None]
